FAERS Safety Report 16978710 (Version 1)
Quarter: 2019Q4

REPORT INFORMATION
  Report Type: Spontaneous
  Country: CA (occurrence: CA)
  Receive Date: 20191031
  Receipt Date: 20191031
  Transmission Date: 20200122
  Serious: Yes (Hospitalization)
  Sender: FDA-Public Use
  Company Number: CA-PFIZER INC-2019468621

PATIENT
  Age: 68 Year
  Sex: Female

DRUGS (7)
  1. ESTRACE [Concomitant]
     Active Substance: ESTRADIOL
     Dosage: 1 MG, UNK
  2. AVELOX [Suspect]
     Active Substance: MOXIFLOXACIN HYDROCHLORIDE
     Indication: PNEUMONIA
     Dosage: 400 MG, DAILY
  3. ATIVAN [Suspect]
     Active Substance: LORAZEPAM
     Dosage: 1 MG, UNK
  4. VOLTAREN [Concomitant]
     Active Substance: DICLOFENAC SODIUM
     Dosage: UNK, 3X/DAY
  5. PROMETRIUM [Concomitant]
     Active Substance: PROGESTERONE
     Dosage: 100 MG, UNK
  6. AVELOX [Suspect]
     Active Substance: MOXIFLOXACIN HYDROCHLORIDE
     Indication: BRONCHITIS
     Dosage: UNK
  7. MINOCIN [Concomitant]
     Active Substance: MINOCYCLINE HYDROCHLORIDE
     Dosage: 100 MG, UNK

REACTIONS (5)
  - Discomfort [Unknown]
  - Gait disturbance [Unknown]
  - Erythema [Unknown]
  - Erythema nodosum [Unknown]
  - Nodule [Unknown]
